FAERS Safety Report 9189862 (Version 1)
Quarter: 2013Q1

REPORT INFORMATION
  Report Type: Spontaneous
  Country: US (occurrence: None)
  Receive Date: 20120703
  Receipt Date: 20120703
  Transmission Date: 20140127
  Serious: Yes (Other)
  Sender: FDA-Public Use
  Company Number: PHEH2012US005525

PATIENT
  Age: 39 Year
  Sex: Male
  Weight: 102 kg

DRUGS (3)
  1. GILENYA [Suspect]
     Route: 048
     Dates: start: 201101, end: 201202
  2. SYNTHROID (LEVOTHYROXINE SODIUM) [Concomitant]
  3. PREGABALIN (PREGABALIN) [Concomitant]

REACTIONS (6)
  - Hepatic enzyme increased [None]
  - Protein total increased [None]
  - Blood bilirubin decreased [None]
  - Aspartate aminotransferase increased [None]
  - Alanine aminotransferase increased [None]
  - Blood albumin increased [None]
